FAERS Safety Report 15618015 (Version 4)
Quarter: 2019Q2

REPORT INFORMATION
  Report Type: Report from Study
  Country: US (occurrence: US)
  Receive Date: 20181114
  Receipt Date: 20190603
  Transmission Date: 20190711
  Serious: Yes (Death, Hospitalization)
  Sender: FDA-Public Use
  Company Number: US-ACTELION-A-US2018-181474

PATIENT
  Age: 69 Year
  Sex: Female

DRUGS (1)
  1. OPSUMIT [Suspect]
     Active Substance: MACITENTAN
     Indication: PULMONARY ARTERIAL HYPERTENSION
     Dosage: 10 MG, QD
     Route: 048
     Dates: start: 20180403, end: 20190326

REACTIONS (5)
  - Fall [Unknown]
  - Death [Fatal]
  - Product dose omission [Unknown]
  - Hospitalisation [Unknown]
  - Memory impairment [Unknown]

NARRATIVE: CASE EVENT DATE: 20190326
